FAERS Safety Report 18605971 (Version 1)
Quarter: 2020Q4

REPORT INFORMATION
  Report Type: Spontaneous
  Country: DK (occurrence: DK)
  Receive Date: 20201211
  Receipt Date: 20201211
  Transmission Date: 20210114
  Serious: Yes (Disabling)
  Sender: FDA-Public Use
  Company Number: DK-SAMSUNG BIOEPIS-SB-2020-36657

PATIENT
  Age: 39 Year
  Sex: Female

DRUGS (1)
  1. IMRALDI [Suspect]
     Active Substance: ADALIMUMAB
     Indication: CROHN^S DISEASE
     Route: 058
     Dates: start: 20200727, end: 20200811

REACTIONS (3)
  - Neurological symptom [Recovering/Resolving]
  - Multiple sclerosis [Not Recovered/Not Resolved]
  - Sensory disturbance [Unknown]

NARRATIVE: CASE EVENT DATE: 20200820
